FAERS Safety Report 12998028 (Version 1)
Quarter: 2016Q4

REPORT INFORMATION
  Report Type: Not Available
  Country: IT (occurrence: IT)
  Receive Date: 20161205
  Receipt Date: 20161205
  Transmission Date: 20170207
  Serious: Yes (Hospitalization)
  Sender: FDA-Public Use
  Company Number: IT-PURDUE-GBR-2016-0041991

PATIENT
  Age: 28 Year
  Sex: Female

DRUGS (2)
  1. TARGIN [Suspect]
     Active Substance: NALOXONE HYDROCHLORIDE\OXYCODONE HYDROCHLORIDE
     Indication: EAR PAIN
     Dosage: 20 UNIT, DAILY [TARGIN 5MG/2.5MG STRENGTH]
     Route: 048
     Dates: start: 20161114, end: 20161118
  2. NOVORAPID [Concomitant]
     Active Substance: INSULIN ASPART
     Indication: TYPE 1 DIABETES MELLITUS
     Dosage: 0.8 IU [IN THOUSAND]
     Route: 058
     Dates: start: 20090210

REACTIONS (3)
  - Mental disorder [Recovering/Resolving]
  - Delirium [Recovering/Resolving]
  - Intentional overdose [Recovering/Resolving]

NARRATIVE: CASE EVENT DATE: 20161118
